FAERS Safety Report 12260392 (Version 1)
Quarter: 2016Q2

REPORT INFORMATION
  Report Type: Spontaneous
  Country: US (occurrence: US)
  Receive Date: 20160412
  Receipt Date: 20160412
  Transmission Date: 20160815
  Serious: No
  Sender: FDA-Public Use
  Company Number: US-SA-2016SA012004

PATIENT
  Age: 77 Year
  Sex: Male

DRUGS (1)
  1. FEXOFENADINE HYDROCHLORIDE. [Suspect]
     Active Substance: FEXOFENADINE HYDROCHLORIDE
     Indication: MULTIPLE ALLERGIES
     Dosage: START DATE: 2 YEARS AGO
     Route: 048

REACTIONS (4)
  - Oropharyngeal discomfort [Unknown]
  - Throat irritation [Unknown]
  - Hypoacusis [Unknown]
  - Headache [Unknown]
